FAERS Safety Report 9354608 (Version 2)
Quarter: 2013Q2

REPORT INFORMATION
  Report Type: Spontaneous
  Country: FR (occurrence: FR)
  Receive Date: 20130618
  Receipt Date: 20130618
  Transmission Date: 20140414
  Serious: Yes (Hospitalization, Other)
  Sender: FDA-Public Use
  Company Number: FR-PW/030428/756

PATIENT
  Age: 0 Year
  Sex: Female

DRUGS (6)
  1. SUBUTEX [Suspect]
     Indication: DRUG DEPENDENCE
     Dosage: UNKNOWN DOSAGE DETAILS
     Route: 064
     Dates: start: 199710, end: 19980608
  2. TEMESTA [Suspect]
     Indication: PRODUCT USED FOR UNKNOWN INDICATION
     Dosage: DOSING DETAILS UNKNOWN
     Route: 064
  3. CHLORQUINALDOL [Suspect]
     Indication: PRODUCT USED FOR UNKNOWN INDICATION
     Dosage: DOSING DETAILS UNKNOWN
     Route: 064
  4. HEROIN [Suspect]
     Indication: PRODUCT USED FOR UNKNOWN INDICATION
     Dosage: DOSING DETAILS UNKNOWN
     Route: 064
  5. COCAINE [Suspect]
     Indication: PRODUCT USED FOR UNKNOWN INDICATION
     Dosage: DOSING DETAILS UNKNOWN
     Route: 064
  6. RETROVIR [Suspect]
     Indication: ANTIRETROVIRAL THERAPY
     Dosage: DOSING DETAILS UNKNOWN
     Route: 064
     Dates: start: 1997, end: 19980608

REACTIONS (7)
  - Drug withdrawal syndrome neonatal [Recovered/Resolved]
  - Neutropenia neonatal [Recovered/Resolved]
  - Hypotonia [Recovered/Resolved]
  - Anaemia macrocytic [Unknown]
  - Foetal exposure during pregnancy [Recovered/Resolved]
  - Caesarean section [None]
  - Maternal drugs affecting foetus [None]
